FAERS Safety Report 13832674 (Version 2)
Quarter: 2017Q3

REPORT INFORMATION
  Report Type: Report from Study
  Country: None (occurrence: IL)
  Receive Date: 20170804
  Receipt Date: 20170814
  Transmission Date: 20171127
  Serious: Yes (Hospitalization)
  Sender: FDA-Public Use
  Company Number: IL-ABBVIE-17K-082-2055364-00

PATIENT
  Age: 61 Year
  Sex: Male

DRUGS (1)
  1. HUMIRA [Suspect]
     Active Substance: ADALIMUMAB
     Indication: PSORIATIC ARTHROPATHY
     Route: 058
     Dates: start: 2016, end: 2017

REACTIONS (9)
  - Post procedural inflammation [Unknown]
  - Post procedural haematoma [Unknown]
  - Post procedural haemorrhage [Unknown]
  - Skin discolouration [Unknown]
  - Influenza [Recovered/Resolved]
  - Swelling [Unknown]
  - Genital blister [Unknown]
  - Post procedural oedema [Unknown]
  - Hernia [Unknown]

NARRATIVE: CASE EVENT DATE: 201607
